FAERS Safety Report 8185057 (Version 5)
Quarter: 2017Q2

REPORT INFORMATION
  Report Type: Spontaneous
  Country: US (occurrence: US)
  Receive Date: 20111018
  Receipt Date: 20170410
  Transmission Date: 20170830
  Serious: No
  Sender: FDA-Public Use
  Company Number: US-ASTRAZENECA-2009UW14760

PATIENT
  Age: 19810 Day
  Sex: Female
  Weight: 50.8 kg

DRUGS (6)
  1. SYMBICORT [Suspect]
     Active Substance: BUDESONIDE\FORMOTEROL FUMARATE DIHYDRATE
     Indication: ASTHMA
     Dosage: TOOK FIVE DOSES ONE PUFF TWO TIMES A DAY
     Route: 055
     Dates: start: 20091013
  2. SYMBICORT [Suspect]
     Active Substance: BUDESONIDE\FORMOTEROL FUMARATE DIHYDRATE
     Indication: ASTHMA
     Dosage: 160/4.5 UG, TWO PUFFS TWICE A DAY AT 10 AM AND 10 PM
     Route: 055
  3. ALBUTEROL. [Concomitant]
     Active Substance: ALBUTEROL
  4. SYMBICORT [Suspect]
     Active Substance: BUDESONIDE\FORMOTEROL FUMARATE DIHYDRATE
     Indication: ASTHMA
     Dosage: 160/4.5, ONE PUFF DAILY
     Route: 055
  5. EPIPEN [Concomitant]
     Active Substance: EPINEPHRINE
  6. SYMBICORT [Suspect]
     Active Substance: BUDESONIDE\FORMOTEROL FUMARATE DIHYDRATE
     Indication: ASTHMA
     Dosage: 320 MCGS, 1 PUFF TWO TIMES A DAY
     Route: 055

REACTIONS (12)
  - Panic reaction [Unknown]
  - Device malfunction [Unknown]
  - Asthma [Recovering/Resolving]
  - Stress [Unknown]
  - Insurance issue [Unknown]
  - Sinus disorder [Unknown]
  - Dyspnoea [Unknown]
  - Wheezing [Unknown]
  - Drug ineffective [Unknown]
  - Drug dose omission [Unknown]
  - Multiple allergies [Unknown]
  - Nervousness [Unknown]

NARRATIVE: CASE EVENT DATE: 20090608
